FAERS Safety Report 16630985 (Version 1)
Quarter: 2019Q3

REPORT INFORMATION
  Report Type: Report from Study
  Country: CO (occurrence: CO)
  Receive Date: 20190725
  Receipt Date: 20190725
  Transmission Date: 20191004
  Serious: Yes (Death, Hospitalization)
  Sender: FDA-Public Use
  Company Number: PHHY2019CO166942

PATIENT
  Age: 66 Year
  Sex: Female
  Weight: 50 kg

DRUGS (3)
  1. KISQALI [Suspect]
     Active Substance: RIBOCICLIB
     Indication: BREAST CANCER METASTATIC
     Dosage: 600 MG, QD
     Route: 048
     Dates: start: 20190620, end: 20190704
  2. FEMARA [Suspect]
     Active Substance: LETROZOLE
     Indication: BREAST CANCER
     Dosage: 2.5 MG, QD
     Route: 048
     Dates: start: 20190620, end: 20190704
  3. METFORMIN [Suspect]
     Active Substance: METFORMIN HYDROCHLORIDE
     Indication: DIABETES MELLITUS
     Dosage: UNK UNK, QD
     Route: 048

REACTIONS (8)
  - Haemoglobin decreased [Unknown]
  - Malignant neoplasm progression [Fatal]
  - Depressed mood [Unknown]
  - Breast cancer metastatic [Fatal]
  - Decreased appetite [Unknown]
  - Platelet count decreased [Unknown]
  - Respiratory failure [Fatal]
  - Asthenia [Unknown]

NARRATIVE: CASE EVENT DATE: 201906
